FAERS Safety Report 6951595-5 (Version None)
Quarter: 2010Q3

REPORT INFORMATION
  Report Type: 
  Country: None (occurrence: None)
  Receive Date: 20100828
  Receipt Date: 20100330
  Transmission Date: 20110219
  Serious: No
  Sender: FDA-Public Use
  Company Number: US-ABBOTT-10P-163-0636190-00

PATIENT
  Sex: Female
  Weight: 74.91 kg

DRUGS (2)
  1. NIASPAN [Suspect]
     Indication: BLOOD CHOLESTEROL INCREASED
     Dates: start: 20100329, end: 20100329
  2. SIMVASTATIN [Concomitant]
     Indication: PRODUCT USED FOR UNKNOWN INDICATION

REACTIONS (6)
  - ERYTHEMA [None]
  - LOCALISED OEDEMA [None]
  - PALPITATIONS [None]
  - PHARYNGEAL OEDEMA [None]
  - PIGMENTATION DISORDER [None]
  - SKIN BURNING SENSATION [None]
